FAERS Safety Report 7638210-2 (Version None)
Quarter: 2011Q3

REPORT INFORMATION
  Report Type: 
  Country: None (occurrence: None)
  Receive Date: 20110722
  Receipt Date: 20110722
  Transmission Date: 20111222
  Serious: Yes (Other)
  Sender: FDA-Public Use
  Company Number: None

PATIENT
  Age: 87 Year
  Sex: Male
  Weight: 90.7194 kg

DRUGS (1)
  1. CARVEDILOL [Suspect]
     Indication: EPISTAXIS
     Dosage: 12.5MG 25 MG TWICE DAILY TWICE DAILY = 37MG
     Dates: start: 20110521

REACTIONS (1)
  - UNEVALUABLE EVENT [None]
